FAERS Safety Report 12700248 (Version 1)
Quarter: 2016Q3

REPORT INFORMATION
  Report Type: Spontaneous
  Country: US (occurrence: US)
  Receive Date: 20160830
  Receipt Date: 20160830
  Transmission Date: 20161109
  Serious: No
  Sender: FDA-Public Use
  Company Number: US-BAYER-2016-159884

PATIENT
  Age: 75 Year
  Sex: Male
  Weight: 90.7 kg

DRUGS (5)
  1. TINACTIN [Suspect]
     Active Substance: TOLNAFTATE
     Indication: TINEA CRURIS
     Dosage: 1 DF, QD
     Route: 061
     Dates: start: 201608, end: 201608
  2. LOTRIMIN ULTRA ANTIFUNGAL [Suspect]
     Active Substance: BUTENAFINE HYDROCHLORIDE
     Indication: TINEA PEDIS
     Dosage: 1 DF, PRN
     Route: 061
  3. TINACTIN [Suspect]
     Active Substance: TOLNAFTATE
     Indication: TINEA CRURIS
     Dosage: 1 DF, PRN
     Route: 061
     Dates: start: 2016, end: 2016
  4. TINACTIN [Suspect]
     Active Substance: TOLNAFTATE
     Indication: TINEA CRURIS
     Dosage: 1 DF, PRN
     Route: 061
  5. TINACTIN SUPER ABSORBENT [Suspect]
     Active Substance: TOLNAFTATE
     Indication: TINEA CRURIS
     Dosage: 1 DF, QD
     Route: 061
     Dates: start: 2016, end: 2016

REACTIONS (4)
  - Application site pain [None]
  - Burning sensation [None]
  - Drug ineffective [None]
  - Expired product administered [None]

NARRATIVE: CASE EVENT DATE: 2016
